FAERS Safety Report 24527088 (Version 1)
Quarter: 2024Q4

REPORT INFORMATION
  Report Type: Report from Study
  Country: US (occurrence: US)
  Receive Date: 20241021
  Receipt Date: 20241021
  Transmission Date: 20250115
  Serious: Yes (Other)
  Sender: ABBVIE
  Company Number: US-ABBVIE-5968527

PATIENT
  Sex: Female

DRUGS (3)
  1. SKYRIZI [Suspect]
     Active Substance: RISANKIZUMAB-RZAA
     Indication: Psoriatic arthropathy
     Dosage: DOSAGE: 150 MG/ML STRENGTH: 150MG/ML?WEEK 0 (10/2023 OR 11/2023-UNKNOWN EXACT DATE)
     Route: 058
     Dates: start: 202310, end: 202310
  2. SKYRIZI [Suspect]
     Active Substance: RISANKIZUMAB-RZAA
     Indication: Crohn^s disease
     Dosage: DOSAGE: 150 MG/ML STRENGTH: 150MG/ML?WEEK 4
     Route: 058
     Dates: start: 2023, end: 2023
  3. SKYRIZI [Suspect]
     Active Substance: RISANKIZUMAB-RZAA
     Dosage: DOSAGE: 150 MG/ML STRENGTH: 150MG/ML
     Route: 058
     Dates: start: 2024

REACTIONS (11)
  - Large intestinal haemorrhage [Unknown]
  - Rotator cuff syndrome [Unknown]
  - Muscle rupture [Unknown]
  - Diarrhoea [Unknown]
  - Constipation [Unknown]
  - Butterfly rash [Unknown]
  - Feeding disorder [Unknown]
  - Vomiting [Unknown]
  - Arthralgia [Not Recovered/Not Resolved]
  - Drug ineffective [Not Recovered/Not Resolved]
  - Unevaluable event [Unknown]

NARRATIVE: CASE EVENT DATE: 20240101
